FAERS Safety Report 16825365 (Version 1)
Quarter: 2019Q3

REPORT INFORMATION
  Report Type: Spontaneous
  Country: CN (occurrence: CN)
  Receive Date: 20190919
  Receipt Date: 20190919
  Transmission Date: 20191005
  Serious: Yes (Other)
  Sender: FDA-Public Use
  Company Number: CN-BAXTER-2019BAX018173

PATIENT
  Age: 52 Year
  Sex: Female
  Weight: 58 kg

DRUGS (4)
  1. 0.9% SODIUM CHLORIDE INJECTION [Suspect]
     Active Substance: SODIUM CHLORIDE
     Indication: MEDICATION DILUTION
     Dosage: ENDOXAN (940 MG) + NS (50 ML), FIRST CHEMOTHERAPY
     Route: 042
     Dates: start: 20190629, end: 20190629
  2. TAXOTERE [Suspect]
     Active Substance: DOCETAXEL
     Indication: BREAST CANCER FEMALE
     Dosage: TAXOTERE (120 MG) + NS (250 ML), FIRST CHEMOTHERAPY
     Route: 041
     Dates: start: 20190629, end: 20190629
  3. ENDOXAN [Suspect]
     Active Substance: CYCLOPHOSPHAMIDE
     Indication: BREAST CANCER FEMALE
     Dosage: ENDOXAN (940 MG) + NS (50 ML), FIRST CHEMOTHERAPY
     Route: 042
     Dates: start: 20190629, end: 20190629
  4. 0.9% SODIUM CHLORIDE INJECTION [Suspect]
     Active Substance: SODIUM CHLORIDE
     Dosage: TAXOTERE (120 MG) + NS (250 ML), FIRST CHEMOTHERAPY
     Route: 041
     Dates: start: 20190629, end: 20190629

REACTIONS (2)
  - Leukopenia [Recovering/Resolving]
  - Agranulocytosis [Recovering/Resolving]

NARRATIVE: CASE EVENT DATE: 20190703
